FAERS Safety Report 19138019 (Version 1)
Quarter: 2021Q2

REPORT INFORMATION
  Report Type: Spontaneous
  Country: GB (occurrence: GB)
  Receive Date: 20210415
  Receipt Date: 20210415
  Transmission Date: 20210717
  Serious: Yes (Other)
  Sender: FDA-Public Use
  Company Number: GB-ADVANZ PHARMA-202104002487

PATIENT

DRUGS (8)
  1. LACTULOSE. [Concomitant]
     Active Substance: LACTULOSE
     Dosage: 3.1?3.7G/5ML
     Dates: start: 20210129
  2. DIGOXIN. [Suspect]
     Active Substance: DIGOXIN
     Dosage: 250 UG, QD, TABLET
     Route: 048
     Dates: start: 20210204, end: 20210318
  3. DEPO?MEDRONE WITH LIDOCAINE [Concomitant]
     Active Substance: LIDOCAINE HYDROCHLORIDE\METHYLPREDNISOLONE ACETATE
     Dosage: UP TWICE DAILY
     Dates: start: 20210204
  4. FLECAINIDE [Concomitant]
     Active Substance: FLECAINIDE
     Dosage: 50 MG, BID
     Dates: start: 20210324
  5. PARACETAMOL [Concomitant]
     Active Substance: ACETAMINOPHEN
     Dosage: 1?2 UP TO FOUR TIMES A DAY
     Dates: start: 20210205
  6. BISOPROLOL [Concomitant]
     Active Substance: BISOPROLOL
     Dosage: 2.5 MG, BID, TABLET
     Dates: start: 20210128
  7. COCODAMOL [Concomitant]
     Active Substance: ACETAMINOPHEN\CODEINE PHOSPHATE
     Dosage: 8MG/500MG  TAKE 1?2 TABLETS FOUR TIMES A DAY
     Dates: start: 20210304
  8. RIVAROXABAN [Concomitant]
     Active Substance: RIVAROXABAN
     Dosage: 20 MG, QD
     Dates: start: 20210128

REACTIONS (1)
  - Nausea [Recovered/Resolved]
